FAERS Safety Report 14095474 (Version 4)
Quarter: 2017Q4

REPORT INFORMATION
  Report Type: Spontaneous
  Country: IT (occurrence: IT)
  Receive Date: 20171016
  Receipt Date: 20171108
  Transmission Date: 20180321
  Serious: Yes (Death, Life-Threatening, Hospitalization, Other)
  Sender: FDA-Public Use
  Company Number: IT-MYLANLABS-2017M1064193

PATIENT
  Age: 76 Year
  Sex: Male

DRUGS (4)
  1. SODIUM CHLORIDE. [Suspect]
     Active Substance: SODIUM CHLORIDE
     Indication: HYPONATRAEMIA
     Dosage: UNK, QD
  2. FUROSEMIDE. [Suspect]
     Active Substance: FUROSEMIDE
     Indication: HYPONATRAEMIA
     Dosage: 20MG
     Route: 065
  3. GLYCINE. [Suspect]
     Active Substance: GLYCINE
     Indication: IRRIGATION THERAPY
     Dosage: APPROXIMATELY 5 LITERS OF 1.5% SOLUTION
     Route: 033
  4. VOLUVEN [Concomitant]
     Active Substance: HYDROXYETHYL STARCH 130/0.4
     Indication: HYPONATRAEMIA
     Dosage: 500 ML

REACTIONS (5)
  - Hyponatraemic encephalopathy [Fatal]
  - Osmotic demyelination syndrome [Unknown]
  - Brain oedema [Fatal]
  - Hyponatraemia [Recovering/Resolving]
  - Atrial fibrillation [Unknown]
